FAERS Safety Report 8620895-5 (Version None)
Quarter: 2012Q3

REPORT INFORMATION
  Report Type: 
  Country: None (occurrence: None)
  Receive Date: 20120824
  Receipt Date: 20120817
  Transmission Date: 20120928
  Serious: Yes (Hospitalization)
  Sender: FDA-Public Use
  Company Number: CHPA2012US018412

PATIENT
  Age: 24 Year
  Sex: Male

DRUGS (2)
  1. DRUG THERAPY NOS [Concomitant]
     Indication: DYSPEPSIA
     Dosage: UNK (20 MG, FREQUENCY UNSPECIFIED)
  2. NICOTINE [Suspect]
     Indication: SMOKING CESSATION THERAPY
     Dosage: 1 DF, QD (1 PATCH)
     Route: 062
     Dates: start: 20120701

REACTIONS (5)
  - VOMITING [None]
  - GASTRIC DISORDER [None]
  - MALAISE [None]
  - NAUSEA [None]
  - EXPIRED DRUG ADMINISTERED [None]
